FAERS Safety Report 17775466 (Version 2)
Quarter: 2021Q1

REPORT INFORMATION
  Report Type: Spontaneous
  Country: US (occurrence: US)
  Receive Date: 20200513
  Receipt Date: 20210120
  Transmission Date: 20210419
  Serious: Yes (Hospitalization)
  Sender: FDA-Public Use
  Company Number: US-TEVA-2020-US-1235316

PATIENT
  Age: 75 Year
  Sex: Female
  Weight: 79.45 kg

DRUGS (6)
  1. REVATIO [Suspect]
     Active Substance: SILDENAFIL CITRATE
     Dosage: 60 MILLIGRAM DAILY; 1 TABLET 3 TIMES A DAY
     Route: 065
     Dates: start: 2019
  2. STATINS [Concomitant]
     Active Substance: UNSPECIFIED INGREDIENT
     Route: 065
  3. REVATIO [Suspect]
     Active Substance: SILDENAFIL CITRATE
     Indication: PULMONARY HYPERTENSION
     Dosage: 60 MILLIGRAM DAILY; 2 TABLETS 3 TIMES A DAY
     Route: 065
     Dates: start: 2019
  4. BLOOD THINNERS [Concomitant]
     Active Substance: UNSPECIFIED INGREDIENT
     Route: 065
  5. TORASEMIDE [Suspect]
     Active Substance: TORSEMIDE
     Route: 065
  6. OPSUMIT [Suspect]
     Active Substance: MACITENTAN
     Route: 065

REACTIONS (2)
  - Weight decreased [Recovered/Resolved]
  - Fluid retention [Recovered/Resolved]

NARRATIVE: CASE EVENT DATE: 202001
